FAERS Safety Report 4451481-9 (Version None)
Quarter: 2004Q3

REPORT INFORMATION
  Report Type: 
  Country: None (occurrence: None)
  Receive Date: 20040915
  Receipt Date: 20040907
  Transmission Date: 20050211
  Serious: Yes (Other)
  Sender: FDA-Public Use
  Company Number: 2004232376US

PATIENT
  Sex: Female

DRUGS (3)
  1. PROVERA MEDROXYPEROGESTERONE ACETATE) TABLET, 2.5-10 MG [Suspect]
     Indication: HORMONE REPLACEMENT THERAPY
     Dates: start: 19930701, end: 20020401
  2. CYCRIN [Suspect]
     Indication: HORMONE REPLACEMENT THERAPY
     Dates: start: 19980801, end: 19990901
  3. PREMPRO [Suspect]
     Indication: HORMONE REPLACEMENT THERAPY
     Dates: start: 19970101, end: 19980401

REACTIONS (1)
  - BREAST CANCER FEMALE [None]
